FAERS Safety Report 8602110-1 (Version None)
Quarter: 2012Q3

REPORT INFORMATION
  Report Type: 
  Country: None (occurrence: None)
  Receive Date: 20120817
  Receipt Date: 20120813
  Transmission Date: 20120928
  Serious: No
  Sender: FDA-Public Use
  Company Number: US-PFIZER INC-2012197548

PATIENT
  Age: 69 Year
  Sex: Male
  Weight: 77.098 kg

DRUGS (2)
  1. LISINOPRIL AND HYDROCHLOROTHIAZIDE [Suspect]
     Indication: HYPERTENSION
     Dosage: 20/12.5, MG, DAILY
  2. SUTENT [Suspect]
     Indication: RENAL CANCER
     Dosage: 50 MG, DAILY
     Dates: start: 20120727

REACTIONS (6)
  - DIZZINESS [None]
  - DECREASED APPETITE [None]
  - CHROMATURIA [None]
  - PRODUCT QUALITY ISSUE [None]
  - PAIN OF SKIN [None]
  - FATIGUE [None]
